FAERS Safety Report 17160933 (Version 1)
Quarter: 2019Q4

REPORT INFORMATION
  Report Type: Spontaneous
  Country: US (occurrence: US)
  Receive Date: 20191216
  Receipt Date: 20191216
  Transmission Date: 20200122
  Serious: No
  Sender: FDA-Public Use
  Company Number: US-BAUSCH-BL-2019-062540

PATIENT
  Sex: Male

DRUGS (4)
  1. FLUOROURACIL CREAM [Suspect]
     Active Substance: FLUOROURACIL
     Indication: SCAB
     Dosage: STARTED YEARS AGO
     Route: 061
  2. EFUDEX [Suspect]
     Active Substance: FLUOROURACIL
     Indication: SCAB
     Dosage: STARTED YEARS AGO
     Route: 061
  3. EFUDEX [Suspect]
     Active Substance: FLUOROURACIL
     Indication: PRODUCT USE IN UNAPPROVED INDICATION
  4. FLUOROURACIL CREAM [Suspect]
     Active Substance: FLUOROURACIL
     Indication: PRODUCT USE IN UNAPPROVED INDICATION

REACTIONS (4)
  - Product administered at inappropriate site [Unknown]
  - Skin abrasion [Unknown]
  - Product use in unapproved indication [Unknown]
  - Application site erythema [Unknown]
